FAERS Safety Report 8318781-3 (Version None)
Quarter: 2012Q2

REPORT INFORMATION
  Report Type: 
  Country: None (occurrence: None)
  Receive Date: 20120427
  Receipt Date: 20120419
  Transmission Date: 20120825
  Serious: Yes (Hospitalization)
  Sender: FDA-Public Use
  Company Number: RU-ABBOTT-12P-251-0927540-00

PATIENT
  Age: 37 Year
  Sex: Female
  Weight: 48 kg

DRUGS (1)
  1. ZEMPLAR [Suspect]
     Indication: HYPERPARATHYROIDISM SECONDARY
     Route: 042
     Dates: start: 20120106

REACTIONS (1)
  - ARTERIOVENOUS FISTULA THROMBOSIS [None]
